FAERS Safety Report 9679190 (Version 1)
Quarter: 2013Q4

REPORT INFORMATION
  Report Type: Spontaneous
  Country: CN (occurrence: None)
  Receive Date: 20131107
  Receipt Date: 20131107
  Transmission Date: 20140711
  Serious: Yes (Hospitalization)
  Sender: FDA-Public Use
  Company Number: VAL_02802_2013

PATIENT
  Age: 67 Year
  Sex: Male
  Weight: 72 kg

DRUGS (1)
  1. LOTENSIN [Suspect]
     Indication: HYPERTENSION
     Dosage: 10 MG Q1H ORAL
     Route: 048
     Dates: start: 20120213, end: 20120215

REACTIONS (4)
  - Palpitations [None]
  - Oedema peripheral [None]
  - Cough [None]
  - Tachypnoea [None]
